FAERS Safety Report 5693008-X (Version None)
Quarter: 2008Q2

REPORT INFORMATION
  Report Type: 
  Country: None (occurrence: None)
  Receive Date: 20080402
  Receipt Date: 20080402
  Transmission Date: 20081010
  Serious: Yes (Life-Threatening, Disabling)
  Sender: FDA-Public Use
  Company Number: None

PATIENT
  Sex: Female
  Weight: 55.7924 kg

DRUGS (1)
  1. PREMARIN [Suspect]
     Indication: HORMONE REPLACEMENT THERAPY
     Dosage: DAILY
     Dates: start: 19950201, end: 20030101

REACTIONS (4)
  - BREAST CANCER STAGE II [None]
  - CARDIAC DISORDER [None]
  - PAIN [None]
  - STRESS [None]
